FAERS Safety Report 5958262-5 (Version None)
Quarter: 2008Q4

REPORT INFORMATION
  Report Type: 
  Country: None (occurrence: None)
  Receive Date: 20081119
  Receipt Date: 20081119
  Transmission Date: 20090506
  Serious: Yes (Life-Threatening, Other)
  Sender: FDA-Public Use
  Company Number: US-ABBOTT-08P-163-0486167-00

PATIENT
  Sex: Female
  Weight: 40.86 kg

DRUGS (21)
  1. HUMIRA [Suspect]
     Indication: CROHN'S DISEASE
     Dates: start: 20080601, end: 20080601
  2. HUMIRA [Suspect]
     Route: 058
     Dates: start: 20080701
  3. TRAMADOL HCL [Suspect]
     Indication: PAIN
     Dates: start: 20080501, end: 20081101
  4. TRAMADOL HCL [Suspect]
     Indication: CROHN'S DISEASE
  5. PERCOGESIC [Concomitant]
     Indication: ABDOMINAL PAIN
  6. PERCOGESIC [Concomitant]
     Indication: CROHN'S DISEASE
  7. PHENERGAN HCL [Concomitant]
     Indication: NAUSEA
  8. ONDANSETRON [Concomitant]
     Indication: NAUSEA
  9. LYCOSAMINE [Concomitant]
     Indication: DRUG USE FOR UNKNOWN INDICATION
  10. PROCHLORPERAZINE EDISYLATE [Concomitant]
     Indication: NAUSEA
  11. FOLIC ACID [Concomitant]
     Indication: DRUG USE FOR UNKNOWN INDICATION
  12. AMYTRIPTYLINE [Concomitant]
     Indication: DRUG USE FOR UNKNOWN INDICATION
  13. LEVETIRACETAM [Concomitant]
     Indication: CONVULSION
  14. ALLOPURINOL [Concomitant]
     Indication: SLEEP DISORDER
  15. GENERIC FOR FIROINAL [Concomitant]
     Indication: MIGRAINE
  16. HYOMAX [Concomitant]
     Indication: ANTIINFLAMMATORY THERAPY
  17. LEVOTHYROXINE SODIUM [Concomitant]
     Indication: HYPOTHYROIDISM
  18. SUCRALFATE [Concomitant]
     Indication: GASTROOESOPHAGEAL REFLUX DISEASE
  19. CYPRUS PH [Concomitant]
     Indication: INFECTION PROPHYLAXIS
  20. FENTANYL [Concomitant]
     Indication: CROHN'S DISEASE
  21. FENTANYL [Concomitant]
     Indication: PAIN

REACTIONS (9)
  - APPARENT DEATH [None]
  - CONVULSION [None]
  - CYANOSIS [None]
  - DEHYDRATION [None]
  - NAUSEA [None]
  - OEDEMA PERIPHERAL [None]
  - RESPIRATORY ARREST [None]
  - SKIN DISCOLOURATION [None]
  - VITAMIN B12 DEFICIENCY [None]
